FAERS Safety Report 7407262-7 (Version None)
Quarter: 2011Q2

REPORT INFORMATION
  Report Type: 
  Country: None (occurrence: None)
  Receive Date: 20110411
  Receipt Date: 20110329
  Transmission Date: 20111010
  Serious: Yes (Other)
  Sender: FDA-Public Use
  Company Number: PHEH2008US10230

PATIENT
  Sex: Female
  Weight: 67.12 kg

DRUGS (38)
  1. VITAMIN B [Concomitant]
  2. FLEXERIL [Concomitant]
  3. MODURETIC 5-50 [Concomitant]
     Dosage: 500 MG
  4. CALCIUM WITH VITAMIN D [Concomitant]
  5. COZAAR [Concomitant]
     Dosage: 50 MG
  6. ACTONEL [Concomitant]
  7. NORVASC [Concomitant]
  8. HYDROCHLOROTHIAZIDE [Concomitant]
  9. ALKERAN [Concomitant]
  10. FOSAMAX [Concomitant]
  11. LIDODERM [Concomitant]
  12. CELEBREX [Concomitant]
  13. AREDIA [Suspect]
  14. ACIPHEX [Concomitant]
  15. PEPCID [Concomitant]
  16. LEVAQUIN [Concomitant]
  17. DECADRON [Concomitant]
  18. AMBIEN [Concomitant]
  19. ZOVIRAX [Concomitant]
  20. TRAMADOL HCL [Concomitant]
  21. LYRICA [Concomitant]
  22. DARVOCET-N 50 [Concomitant]
  23. FAMVIR                                  /NET/ [Concomitant]
     Dosage: UNK
     Dates: start: 20050901
  24. PRILOSEC [Concomitant]
  25. ASCORBIC ACID [Concomitant]
  26. NEURONTIN [Concomitant]
  27. ZOMETA [Suspect]
     Dosage: 4MG
     Dates: end: 20060401
  28. ZOCOR [Concomitant]
  29. LIPITOR [Concomitant]
  30. ASPIRIN [Concomitant]
  31. MEDROL [Concomitant]
  32. MODURETIC 5-50 [Concomitant]
  33. PREDNISONE [Concomitant]
  34. ATENOLOL [Concomitant]
     Dosage: 50 MG
  35. THALIDOMIDE [Concomitant]
  36. XANAX [Concomitant]
  37. MOBIC [Concomitant]
  38. NAPROSYN [Concomitant]

REACTIONS (74)
  - TOOTH DISORDER [None]
  - UPPER RESPIRATORY TRACT INFECTION [None]
  - BRONCHITIS [None]
  - BACK PAIN [None]
  - MYALGIA [None]
  - TRICUSPID VALVE INCOMPETENCE [None]
  - INTERVERTEBRAL DISC DEGENERATION [None]
  - SACROILIITIS [None]
  - CUBITAL TUNNEL SYNDROME [None]
  - POST HERPETIC NEURALGIA [None]
  - TOOTH INFECTION [None]
  - SCIATICA [None]
  - GASTROINTESTINAL HAEMORRHAGE [None]
  - PARAPROTEINAEMIA [None]
  - COUGH [None]
  - MITRAL VALVE INCOMPETENCE [None]
  - ANXIETY DISORDER [None]
  - EXCESSIVE GRANULATION TISSUE [None]
  - ULCERATIVE KERATITIS [None]
  - OSTEOPOROSIS [None]
  - ARTHRALGIA [None]
  - PAIN IN EXTREMITY [None]
  - DIARRHOEA [None]
  - HEART RATE INCREASED [None]
  - STOMATITIS [None]
  - PURULENT DISCHARGE [None]
  - INJECTION SITE PAIN [None]
  - CHOLECYSTITIS [None]
  - HERPES ZOSTER [None]
  - RIB FRACTURE [None]
  - HYPERLIPIDAEMIA [None]
  - OSTEOPENIA [None]
  - BONE DENSITY DECREASED [None]
  - MYOPATHY [None]
  - EYE PAIN [None]
  - HYPOAESTHESIA [None]
  - RHINORRHOEA [None]
  - MUSCULOSKELETAL PAIN [None]
  - AORTIC STENOSIS [None]
  - MITRAL VALVE CALCIFICATION [None]
  - ROTATOR CUFF SYNDROME [None]
  - TENDON INJURY [None]
  - LUMBAR RADICULOPATHY [None]
  - PEPTIC ULCER [None]
  - LOOSE TOOTH [None]
  - AORTIC ARTERIOSCLEROSIS [None]
  - SPINAL OSTEOARTHRITIS [None]
  - ARTHROPATHY [None]
  - CARPAL TUNNEL SYNDROME [None]
  - POLYMYALGIA RHEUMATICA [None]
  - PULMONARY HYPERTENSION [None]
  - TENDERNESS [None]
  - OSTEONECROSIS OF JAW [None]
  - PAIN IN JAW [None]
  - METASTATIC NEOPLASM [None]
  - NECK PAIN [None]
  - AORTIC VALVE INCOMPETENCE [None]
  - OSTEOMYELITIS [None]
  - PRIMARY SEQUESTRUM [None]
  - MUSCULOSKELETAL STIFFNESS [None]
  - EPICONDYLITIS [None]
  - TONSILLAR DISORDER [None]
  - HYPERTENSION [None]
  - SCOLIOSIS [None]
  - NEUROPATHY PERIPHERAL [None]
  - HIATUS HERNIA [None]
  - TOOTH FRACTURE [None]
  - PSORIASIS [None]
  - GASTROOESOPHAGEAL REFLUX DISEASE [None]
  - ANXIETY [None]
  - HEADACHE [None]
  - NASAL CONGESTION [None]
  - SPINAL COLUMN STENOSIS [None]
  - CATARACT [None]
